FAERS Safety Report 9100985 (Version 1)
Quarter: 2013Q1

REPORT INFORMATION
  Report Type: Spontaneous
  Country: US (occurrence: US)
  Receive Date: 20130214
  Receipt Date: 20130214
  Transmission Date: 20140127
  Serious: Yes (Other)
  Sender: FDA-Public Use
  Company Number: US-PFIZER INC-2013059200

PATIENT
  Age: 3 Year
  Sex: Male

DRUGS (1)
  1. CHILDRENS ADVIL [Suspect]
     Indication: EAR INFECTION
     Dosage: UNK

REACTIONS (6)
  - Psychomotor hyperactivity [Unknown]
  - Feeling hot [Unknown]
  - Restlessness [Unknown]
  - Hyperhidrosis [Unknown]
  - Initial insomnia [Unknown]
  - Irritability [Unknown]
